FAERS Safety Report 9418379 (Version 1)
Quarter: 2013Q3

REPORT INFORMATION
  Report Type: Spontaneous
  Country: US (occurrence: US)
  Receive Date: 20130725
  Receipt Date: 20130725
  Transmission Date: 20140515
  Serious: Yes (Hospitalization, Other)
  Sender: FDA-Public Use
  Company Number: US-ROCHE-1252358

PATIENT
  Age: 57 Year
  Sex: Male
  Weight: 89.39 kg

DRUGS (6)
  1. AVASTIN [Suspect]
     Indication: OESOPHAGEAL CARCINOMA
     Route: 042
     Dates: start: 20121026, end: 20130403
  2. XGEVA [Suspect]
     Indication: PRODUCT USED FOR UNKNOWN INDICATION
     Route: 058
     Dates: start: 20121026, end: 20130123
  3. CORTICOSTEROIDS (UNK INGREDIENTS) [Concomitant]
  4. 5-FU [Concomitant]
     Route: 065
     Dates: start: 20121026
  5. LEUCOVORIN [Concomitant]
     Route: 065
     Dates: start: 20121026
  6. IRINOTECAN [Concomitant]
     Route: 065
     Dates: start: 20121026

REACTIONS (2)
  - Osteonecrosis of jaw [Recovering/Resolving]
  - Oesophageal cancer metastatic [Unknown]
